FAERS Safety Report 15485860 (Version 1)
Quarter: 2018Q4

REPORT INFORMATION
  Report Type: Spontaneous
  Country: US (occurrence: US)
  Receive Date: 20181011
  Receipt Date: 20181011
  Transmission Date: 20190205
  Serious: No
  Sender: FDA-Public Use
  Company Number: US-ROCHE-2194649

PATIENT
  Sex: Female
  Weight: 87.17 kg

DRUGS (2)
  1. OCREVUS [Suspect]
     Active Substance: OCRELIZUMAB
     Dosage: ONGOING: UNKNOWN
     Route: 065
  2. OCREVUS [Suspect]
     Active Substance: OCRELIZUMAB
     Indication: NEOPLASM
     Dosage: FIRST OCREVUS INFUSION ;ONGOING: NO
     Route: 065
     Dates: start: 20180921, end: 20180921

REACTIONS (5)
  - Weight increased [Not Recovered/Not Resolved]
  - Binge eating [Unknown]
  - Nasopharyngitis [Not Recovered/Not Resolved]
  - Dyspnoea [Not Recovered/Not Resolved]
  - Speech disorder [Not Recovered/Not Resolved]
